FAERS Safety Report 5406995-1 (Version None)
Quarter: 2007Q3

REPORT INFORMATION
  Report Type: 
  Country: None (occurrence: None)
  Receive Date: 20070803
  Receipt Date: 20070803
  Transmission Date: 20080115
  Serious: Yes (Hospitalization)
  Sender: FDA-Public Use
  Company Number: None

PATIENT
  Age: 93 Year
  Sex: Male

DRUGS (2)
  1. CLOPIDOGREL [Suspect]
     Indication: CEREBROVASCULAR ACCIDENT
     Dosage: 75MG EVERY DAY PO
     Route: 048
     Dates: start: 20070629, end: 20070730
  2. CLOPIDOGREL [Suspect]
     Indication: TRANSIENT ISCHAEMIC ATTACK
     Dosage: 75MG EVERY DAY PO
     Route: 048
     Dates: start: 20070629, end: 20070730

REACTIONS (1)
  - SUBDURAL HAEMATOMA [None]
